FAERS Safety Report 4707268-2 (Version None)
Quarter: 2005Q3

REPORT INFORMATION
  Report Type: 
  Country: None (occurrence: None)
  Receive Date: 20050701
  Receipt Date: 20050620
  Transmission Date: 20060218
  Serious: Yes (Other)
  Sender: FDA-Public Use
  Company Number: HQWYE691324JUN05

PATIENT
  Sex: Male

DRUGS (3)
  1. EFFEXOR [Suspect]
     Indication: POST-TRAUMATIC STRESS DISORDER
     Dosage: TRANSPLACENTAL
     Route: 064
  2. FLUOXETINE [Suspect]
     Indication: POST-TRAUMATIC STRESS DISORDER
     Dosage: TRANSPLACENTAL
     Route: 064
  3. CARBAMAZEPINE [Concomitant]

REACTIONS (9)
  - AGITATION NEONATAL [None]
  - DRUG EXPOSURE DURING PREGNANCY [None]
  - DRUG WITHDRAWAL SYNDROME NEONATAL [None]
  - HIGH-PITCHED CRYING [None]
  - NEONATAL DISORDER [None]
  - NEONATAL RESPIRATORY DISTRESS SYNDROME [None]
  - POOR SUCKING REFLEX [None]
  - PREMATURE BABY [None]
  - RESPIRATORY RATE INCREASED [None]
